FAERS Safety Report 21402427 (Version 1)
Quarter: 2022Q4

REPORT INFORMATION
  Report Type: Spontaneous
  Country: US (occurrence: US)
  Receive Date: 20221003
  Receipt Date: 20221003
  Transmission Date: 20230113
  Serious: No
  Sender: FDA-Public Use
  Company Number: US-PFIZER INC-202201197104

PATIENT
  Age: 64 Year
  Sex: Female

DRUGS (19)
  1. XELJANZ XR [Suspect]
     Active Substance: TOFACITINIB CITRATE
     Dosage: 11 MG, DAILY (PER DAY ORALLY)
     Route: 048
     Dates: start: 20220825
  2. OZEMPIC [Concomitant]
     Active Substance: SEMAGLUTIDE
     Dosage: UNK (1/0.75 (3) PEN INJCTR)
  3. HYDROCHLOROTHIAZIDE\VALSARTAN [Concomitant]
     Active Substance: HYDROCHLOROTHIAZIDE\VALSARTAN
     Dosage: UNK
  4. LEVOTHYROXINE SODIUM [Concomitant]
     Active Substance: LEVOTHYROXINE SODIUM
     Dosage: 50 UG
  5. VITAMIN D3 [Concomitant]
     Active Substance: CHOLECALCIFEROL
     Dosage: 10 UG
  6. CYMBALTA [Concomitant]
     Active Substance: DULOXETINE HYDROCHLORIDE
     Dosage: 60 MG
  7. NOVOLIN 70/30 [Concomitant]
     Active Substance: INSULIN HUMAN
     Dosage: UNK (70-30/ML VIAL)
  8. PYRIDOXINE [Concomitant]
     Active Substance: PYRIDOXINE
     Dosage: 100 MG
  9. FARXIGA [Concomitant]
     Active Substance: DAPAGLIFLOZIN PROPANEDIOL
     Dosage: 10 MG
  10. OXYCODONE AND ACETAMINOPHEN [Concomitant]
     Active Substance: ACETAMINOPHEN\OXYCODONE HYDROCHLORIDE
     Dosage: UNK, AS NEEDED
  11. ATORVASTATIN CALCIUM [Concomitant]
     Active Substance: ATORVASTATIN CALCIUM
     Dosage: 40 MG
  12. BUTALBITAL, ACETAMINOPHEN, AND CAFFEINE [Concomitant]
     Active Substance: ACETAMINOPHEN\BUTALBITAL\CAFFEINE
     Dosage: UNK, AS NEEDED
  13. VITAMIN K [Concomitant]
     Active Substance: PHYTONADIONE
     Dosage: 100 UG
  14. BACLOFEN [Concomitant]
     Active Substance: BACLOFEN
     Dosage: 10 MG
  15. LEFLUNOMIDE [Concomitant]
     Active Substance: LEFLUNOMIDE
     Dosage: 10 MG
  16. FISH OIL [Concomitant]
     Active Substance: FISH OIL
     Dosage: 1000 MG
  17. COENZYME Q10 [Concomitant]
     Active Substance: DIETARY SUPPLEMENT\UBIDECARENONE
     Dosage: 100 MG
  18. TIZANIDINE HYDROCHLORIDE [Concomitant]
     Active Substance: TIZANIDINE HYDROCHLORIDE
     Dosage: 2 MG
  19. FLUCONAZOLE [Concomitant]
     Active Substance: FLUCONAZOLE
     Dosage: 150 MG, AS NEEDED

REACTIONS (3)
  - Blood pressure increased [Not Recovered/Not Resolved]
  - Arthralgia [Not Recovered/Not Resolved]
  - Arthropathy [Unknown]
